FAERS Safety Report 7630677-9 (Version None)
Quarter: 2011Q3

REPORT INFORMATION
  Report Type: 
  Country: None (occurrence: None)
  Receive Date: 20110722
  Receipt Date: 20110713
  Transmission Date: 20111222
  Serious: Yes (Hospitalization, Other)
  Sender: FDA-Public Use
  Company Number: US-ASTRAZENECA-2011SE42176

PATIENT
  Age: 933 Month
  Sex: Male

DRUGS (14)
  1. AMOX/K CLAV [Concomitant]
     Dates: start: 20110227
  2. NEOMYCIN [Concomitant]
     Dates: start: 20110108
  3. CEFUROXIME [Concomitant]
     Dates: start: 20110110
  4. DEHISTINE [Concomitant]
     Dates: start: 20110110
  5. CYANOCOBALAMIN [Concomitant]
     Dates: start: 20110418
  6. ATENOLOL [Concomitant]
     Dates: start: 20110419
  7. NYSTATIN [Concomitant]
     Dates: start: 20110227
  8. AMOXICILLIN [Concomitant]
     Dates: start: 20110419
  9. LEVAQUIN [Concomitant]
     Dates: start: 20110207
  10. FLUCONAZOLE [Concomitant]
     Dates: start: 20110227
  11. CHLORHEX [Concomitant]
     Dates: start: 20110419
  12. CITALOPRAM [Concomitant]
     Dates: start: 20110419
  13. SYMBICORT [Suspect]
     Route: 055
  14. METHYLPREDNISOLONE [Concomitant]
     Dates: start: 20110207

REACTIONS (4)
  - METASTASES TO LIVER [None]
  - IMPAIRED WORK ABILITY [None]
  - GASTRIC CANCER [None]
  - GASTRIC OPERATION [None]
